FAERS Safety Report 10662939 (Version 1)
Quarter: 2014Q4

REPORT INFORMATION
  Report Type: Spontaneous
  Country: US (occurrence: US)
  Receive Date: 20141218
  Receipt Date: 20141218
  Transmission Date: 20150529
  Serious: No
  Sender: FDA-Public Use
  Company Number: US-GLAXOSMITHKLINE-A1050074A

PATIENT

DRUGS (1)
  1. COREG CR [Suspect]
     Active Substance: CARVEDILOL PHOSPHATE
     Indication: ARRHYTHMIA
     Dosage: 20 MG IN BTA ON 26 JUNE 2013
     Route: 065
     Dates: start: 2010

REACTIONS (1)
  - Inappropriate schedule of drug administration [Unknown]
